FAERS Safety Report 9254351 (Version 1)
Quarter: 2013Q2

REPORT INFORMATION
  Report Type: Spontaneous
  Country: US (occurrence: None)
  Receive Date: 20130422
  Receipt Date: 20130422
  Transmission Date: 20140414
  Serious: Yes (Hospitalization)
  Sender: FDA-Public Use
  Company Number: None

PATIENT
  Age: 62 Year
  Sex: Male
  Weight: 71.2 kg

DRUGS (1)
  1. CETUXIMAB [Suspect]
     Indication: SQUAMOUS CELL CARCINOMA
     Route: 042
     Dates: start: 20130328, end: 20130328

REACTIONS (8)
  - Headache [None]
  - Chills [None]
  - Hyperhidrosis [None]
  - Nausea [None]
  - Vomiting [None]
  - Diarrhoea [None]
  - CSF protein increased [None]
  - CSF white blood cell count increased [None]
